FAERS Safety Report 19084230 (Version 2)
Quarter: 2021Q2

REPORT INFORMATION
  Report Type: Spontaneous
  Country: DE (occurrence: DE)
  Receive Date: 20210401
  Receipt Date: 20210409
  Transmission Date: 20210717
  Serious: Yes (Death)
  Sender: FDA-Public Use
  Company Number: NVSC2021DE048033

PATIENT
  Age: 67 Year
  Sex: Female
  Weight: 71 kg

DRUGS (12)
  1. NALOXONE HYDROCHLORIDE. [Concomitant]
     Active Substance: NALOXONE HYDROCHLORIDE
     Indication: PROPHYLAXIS
     Dosage: UNK
     Route: 048
     Dates: start: 20171005
  2. OSTEOPLUS [Concomitant]
     Indication: MINERAL SUPPLEMENTATION
  3. FULVESTRANT. [Suspect]
     Active Substance: FULVESTRANT
     Dosage: UNK
     Route: 065
  4. PALBOCICLIB [Suspect]
     Active Substance: PALBOCICLIB
     Dosage: 100 MG, CYCLIC (100 MG, DAY 1?21)
     Route: 048
     Dates: start: 20171106, end: 20180228
  5. DENOSUMAB [Concomitant]
     Active Substance: DENOSUMAB
     Indication: PROPHYLAXIS
     Dosage: UNK
     Route: 058
     Dates: start: 2017
  6. DENOSUMAB [Concomitant]
     Active Substance: DENOSUMAB
     Indication: METASTASES TO BONE
  7. METOCLOPRAMIDE. [Concomitant]
     Active Substance: METOCLOPRAMIDE
     Indication: PROPHYLAXIS
     Dosage: UNK
     Route: 048
     Dates: start: 2017
  8. FULVESTRANT. [Suspect]
     Active Substance: FULVESTRANT
     Indication: BREAST CANCER
     Dosage: 500 MG, CYCLIC (500 MG, D1 Q D28)
     Route: 030
     Dates: start: 20171010, end: 20180314
  9. NOVAMINSULFON [Concomitant]
     Active Substance: METAMIZOLE
     Indication: GENERAL SYMPTOM
     Dosage: UNK
     Route: 048
     Dates: start: 20170613
  10. PALBOCICLIB [Suspect]
     Active Substance: PALBOCICLIB
     Indication: BREAST CANCER METASTATIC
     Dosage: 125 MG (125 MG, DAY 1?21)
     Route: 048
     Dates: start: 20171010
  11. OSTEOPLUS [Concomitant]
     Indication: PROPHYLAXIS
     Dosage: UNK
     Route: 048
     Dates: start: 2017
  12. NALOXONE HYDROCHLORIDE. [Concomitant]
     Active Substance: NALOXONE HYDROCHLORIDE
     Indication: GENERAL SYMPTOM

REACTIONS (3)
  - Fatigue [Recovered/Resolved]
  - Neoplasm progression [Fatal]
  - Fatigue [Recovered/Resolved]

NARRATIVE: CASE EVENT DATE: 20171110
